FAERS Safety Report 5087748-3 (Version None)
Quarter: 2006Q3

REPORT INFORMATION
  Report Type: 
  Country: None (occurrence: None)
  Receive Date: 20060824
  Receipt Date: 20060605
  Transmission Date: 20061208
  Serious: Yes (Other)
  Sender: FDA-Public Use
  Company Number: PHFR2006GB01911

PATIENT
  Age: 58 Year
  Sex: Female
  Weight: 73.6 kg

DRUGS (2)
  1. GLEEVEC [Suspect]
     Indication: CHRONIC MYELOID LEUKAEMIA
     Dosage: 400MG / DAY
     Route: 048
     Dates: start: 20041124, end: 20060607
  2. GLEEVEC [Suspect]
     Dosage: 300MG / DAY
     Route: 048
     Dates: start: 20060809

REACTIONS (7)
  - DIARRHOEA [None]
  - INSOMNIA [None]
  - NAUSEA [None]
  - PULMONARY OEDEMA [None]
  - RETINAL VEIN OCCLUSION [None]
  - SEBORRHOEIC DERMATITIS [None]
  - SKIN LESION [None]
